FAERS Safety Report 15330494 (Version 1)
Quarter: 2018Q3

REPORT INFORMATION
  Report Type: Spontaneous
  Country: US (occurrence: US)
  Receive Date: 20180829
  Receipt Date: 20180829
  Transmission Date: 20181010
  Serious: No
  Sender: FDA-Public Use
  Company Number: US-BAYER-2018-154700

PATIENT
  Age: 59 Year
  Sex: Female

DRUGS (1)
  1. FINACEA [Suspect]
     Active Substance: AZELAIC ACID
     Dosage: 1 DF, QD
     Dates: start: 20180611

REACTIONS (3)
  - Product colour issue [Unknown]
  - Product physical consistency issue [Unknown]
  - Poor quality drug administered [None]

NARRATIVE: CASE EVENT DATE: 20180611
